FAERS Safety Report 4563899-4 (Version None)
Quarter: 2005Q1

REPORT INFORMATION
  Report Type: 
  Country: None (occurrence: None)
  Receive Date: 20050121
  Receipt Date: 20041230
  Transmission Date: 20050727
  Serious: Yes (Hospitalization)
  Sender: FDA-Public Use
  Company Number: USA050187267

PATIENT
  Age: 84 Year
  Sex: Female

DRUGS (4)
  1. HUMALOG [Suspect]
     Indication: DIABETES MELLITUS
     Dates: start: 20041001
  2. GLUCOPHAGE [Concomitant]
  3. GLIPIZIDE [Concomitant]
  4. LANTUS [Concomitant]

REACTIONS (7)
  - BLOOD GLUCOSE INCREASED [None]
  - FALL [None]
  - PHARMACEUTICAL PRODUCT COMPLAINT [None]
  - PRURITUS [None]
  - RASH PAPULAR [None]
  - ROTATOR CUFF SYNDROME [None]
  - TENDON INJURY [None]
